FAERS Safety Report 6359235-3 (Version None)
Quarter: 2009Q3

REPORT INFORMATION
  Report Type: 
  Country: None (occurrence: None)
  Receive Date: 20090917
  Receipt Date: 20090909
  Transmission Date: 20100115
  Serious: Yes (Hospitalization)
  Sender: FDA-Public Use
  Company Number: PHHY2009JP09681

PATIENT
  Sex: Male
  Weight: 59 kg

DRUGS (3)
  1. DIOVAN [Suspect]
     Dosage: 80 MG, ONCE DAILY
     Route: 048
     Dates: start: 20071107, end: 20080526
  2. LOXONIN [Concomitant]
     Dosage: 3 DF, UNK
     Route: 048
     Dates: start: 20071107, end: 20071225
  3. MUCOSTA [Concomitant]
     Dosage: 3 DF, UNK
     Route: 048
     Dates: start: 20071107, end: 20071225

REACTIONS (1)
  - INTERSTITIAL LUNG DISEASE [None]
